FAERS Safety Report 22266802 (Version 1)
Quarter: 2023Q2

REPORT INFORMATION
  Report Type: Spontaneous
  Country: US (occurrence: None)
  Receive Date: 20230428
  Receipt Date: 20230428
  Transmission Date: 20230722
  Serious: Yes (Life-Threatening)
  Sender: FDA-Public Use
  Company Number: 2023A099497

PATIENT
  Age: 35 Year
  Sex: Female

DRUGS (9)
  1. QUETIAPINE [Suspect]
     Active Substance: QUETIAPINE
     Route: 048
  2. LORAZEPAM [Suspect]
     Active Substance: LORAZEPAM
  3. VORTIOXETINE [Suspect]
     Active Substance: VORTIOXETINE
  4. ALBUTEROL [Suspect]
     Active Substance: ALBUTEROL
  5. FENTANYL [Suspect]
     Active Substance: FENTANYL
     Dosage: 50 MCG
  6. MIDAZOLAM [Concomitant]
     Active Substance: MIDAZOLAM
     Indication: Anxiolytic therapy
     Dosage: 2 MG
  7. LIDOCAINE [Concomitant]
     Active Substance: LIDOCAINE
     Dosage: 60 MG
  8. PROPOFOL [Concomitant]
     Active Substance: PROPOFOL
     Dosage: 150 MG
  9. SEVOFLURANE [Concomitant]
     Active Substance: SEVOFLURANE
     Indication: Maintenance of anaesthesia
     Dosage: 150 MG

REACTIONS (1)
  - Serotonin syndrome [Recovered/Resolved]
